FAERS Safety Report 15320272 (Version 2)
Quarter: 2018Q3

REPORT INFORMATION
  Report Type: Spontaneous
  Country: CO (occurrence: CO)
  Receive Date: 20180827
  Receipt Date: 20180906
  Transmission Date: 20181010
  Serious: No
  Sender: FDA-Public Use
  Company Number: CO-009507513-1702COL011169

PATIENT
  Age: 27 Year
  Sex: Female
  Weight: 62 kg

DRUGS (1)
  1. IMPLANON [Suspect]
     Active Substance: ETONOGESTREL
     Indication: CONTRACEPTION
     Dosage: ONE IMPLANT
     Route: 059
     Dates: start: 20160511, end: 20170323

REACTIONS (25)
  - Arthralgia [Recovered/Resolved]
  - Nausea [Recovered/Resolved]
  - Headache [Recovered/Resolved]
  - Oligomenorrhoea [Recovered/Resolved]
  - Pain in extremity [Recovered/Resolved]
  - Menorrhagia [Recovered/Resolved]
  - Maternal exposure before pregnancy [Unknown]
  - Hysterectomy [Unknown]
  - Neck pain [Recovered/Resolved]
  - Pain in extremity [Recovered/Resolved]
  - Headache [Recovered/Resolved]
  - Nausea [Recovered/Resolved]
  - Oligomenorrhoea [Recovered/Resolved]
  - Eating disorder [Recovered/Resolved]
  - Hypoaesthesia [Recovered/Resolved]
  - Amenorrhoea [Recovered/Resolved]
  - Hypoaesthesia [Recovered/Resolved]
  - Abdominal pain [Recovered/Resolved]
  - Abdominal pain [Recovered/Resolved]
  - Weight increased [Not Recovered/Not Resolved]
  - Ovarian cyst [Recovered/Resolved]
  - Menorrhagia [Recovered/Resolved]
  - Eye pain [Recovered/Resolved]
  - Uterine leiomyoma [Recovered/Resolved]
  - Ovarian enlargement [Recovered/Resolved]

NARRATIVE: CASE EVENT DATE: 2016
